FAERS Safety Report 9772292 (Version 1)
Quarter: 2013Q4

REPORT INFORMATION
  Report Type: Spontaneous
  Country: US (occurrence: US)
  Receive Date: 20131219
  Receipt Date: 20131219
  Transmission Date: 20140711
  Serious: No
  Sender: FDA-Public Use
  Company Number: US-BAYER-2013-155093

PATIENT
  Age: 23 Year
  Sex: Female

DRUGS (3)
  1. AVELOX [Suspect]
     Indication: SINUSITIS
     Dosage: 400 MG, QD
     Route: 048
     Dates: start: 201312, end: 201312
  2. ORTHO TRI-CYCLEN LO [Concomitant]
     Dosage: UNK
  3. NOREL [Concomitant]

REACTIONS (5)
  - Diarrhoea [Recovered/Resolved]
  - Panic attack [Recovered/Resolved]
  - Flushing [Recovered/Resolved]
  - Dyspnoea [Recovered/Resolved]
  - Urticaria [Recovered/Resolved]
